FAERS Safety Report 22822987 (Version 7)
Quarter: 2024Q3

REPORT INFORMATION
  Report Type: Report from Study
  Country: US (occurrence: US)
  Receive Date: 20230815
  Receipt Date: 20240821
  Transmission Date: 20241017
  Serious: Yes (Other)
  Sender: NOVARTIS
  Company Number: US-002147023-NVSC2023US177473

PATIENT
  Sex: Male

DRUGS (1)
  1. KESIMPTA [Suspect]
     Active Substance: OFATUMUMAB
     Indication: Product used for unknown indication
     Dosage: UNK
     Route: 065

REACTIONS (18)
  - Lyme disease [Unknown]
  - Peripheral swelling [Unknown]
  - Tendonitis [Unknown]
  - Arthralgia [Unknown]
  - Pain in extremity [Unknown]
  - Joint swelling [Unknown]
  - Musculoskeletal discomfort [Unknown]
  - Dysstasia [Unknown]
  - Weight decreased [Unknown]
  - Influenza like illness [Unknown]
  - Chills [Unknown]
  - Skin discolouration [Unknown]
  - Blister [Unknown]
  - Cellulitis [Unknown]
  - Swelling [Recovered/Resolved]
  - Pain [Recovering/Resolving]
  - Fall [Unknown]
  - Limb discomfort [Unknown]
